FAERS Safety Report 19568721 (Version 4)
Quarter: 2021Q3

REPORT INFORMATION
  Report Type: Report from Study
  Country: MX (occurrence: MX)
  Receive Date: 20210715
  Receipt Date: 20210901
  Transmission Date: 20211014
  Serious: Yes (Hospitalization)
  Sender: FDA-Public Use
  Company Number: MX-PFIZER INC-2021867404

PATIENT
  Age: 5 Year
  Sex: Male
  Weight: 16.9 kg

DRUGS (15)
  1. CIPROFLOXACIN. [Concomitant]
     Active Substance: CIPROFLOXACIN
     Dosage: 370 MILLIGRAM
     Route: 065
     Dates: start: 20210624, end: 20210628
  2. FOLINIC ACID [Concomitant]
     Active Substance: LEUCOVORIN
     Dosage: 22.5 MILLIGRAM
     Route: 065
     Dates: start: 20210624, end: 20210624
  3. PREDNISONE. [Concomitant]
     Active Substance: PREDNISONE
     Dosage: 10 MILLIGRAM
     Route: 065
     Dates: start: 20210624, end: 20210627
  4. PREDNISONE. [Concomitant]
     Active Substance: PREDNISONE
     Dosage: 20 MILLIGRAM
     Route: 065
     Dates: start: 20210621, end: 20210623
  5. CIPROFLOXACIN. [Concomitant]
     Active Substance: CIPROFLOXACIN
     Dosage: 340 MILLIGRAM
     Route: 065
     Dates: start: 20210527, end: 20210621
  6. APIXABAN [Suspect]
     Active Substance: APIXABAN
     Indication: THROMBOSIS PROPHYLAXIS
     Dosage: 2 MILLILITER DAILY DOSE
     Route: 048
     Dates: start: 20210530, end: 20210621
  7. METHOTREXATE SODIUM. [Suspect]
     Active Substance: METHOTREXATE SODIUM
     Dosage: 9 MILLIGRAM
     Route: 065
     Dates: start: 20210622, end: 20210622
  8. PREDNISONE. [Concomitant]
     Active Substance: PREDNISONE
     Dosage: 30 MILLIGRAM
     Route: 065
     Dates: start: 20210518, end: 20210621
  9. ENOXAPARIN [Concomitant]
     Active Substance: ENOXAPARIN
     Indication: JUGULAR VEIN THROMBOSIS
     Dosage: 40 MILLIGRAM
     Route: 065
     Dates: start: 20210624
  10. METHOTREXATE SODIUM. [Suspect]
     Active Substance: METHOTREXATE SODIUM
     Dosage: 14650 MILLIGRAM
     Route: 065
     Dates: start: 20210622, end: 20210622
  11. METHOTREXATE SODIUM. [Suspect]
     Active Substance: METHOTREXATE SODIUM
     Dosage: 1480 MILLIGRAM
     Route: 065
     Dates: start: 20210622, end: 20210622
  12. VINCRISTINE [Concomitant]
     Active Substance: VINCRISTINE
     Dosage: 0.9 MILLIGRAM
     Route: 065
     Dates: start: 20210616, end: 20210616
  13. MERCAPTOPURINE. [Concomitant]
     Active Substance: MERCAPTOPURINE
     Dosage: 37.5 MILLIGRAM
     Route: 065
     Dates: start: 20210621
  14. ONDANSETRON [Concomitant]
     Active Substance: ONDANSETRON
     Dosage: 9 MILLIGRAM
     Route: 065
     Dates: start: 20210622
  15. FOLINIC ACID [Concomitant]
     Active Substance: LEUCOVORIN
     Dosage: 30 MILLIGRAM
     Route: 065
     Dates: start: 20210624, end: 20210624

REACTIONS (1)
  - Mucosal inflammation [Recovered/Resolved]

NARRATIVE: CASE EVENT DATE: 20210628
